FAERS Safety Report 8262675-9 (Version None)
Quarter: 2012Q2

REPORT INFORMATION
  Report Type: 
  Country: None (occurrence: None)
  Receive Date: 20120405
  Receipt Date: 20120402
  Transmission Date: 20120825
  Serious: Yes (Other)
  Sender: FDA-Public Use
  Company Number: US-JNJFOC-20120401011

PATIENT
  Sex: Female
  Weight: 57.15 kg

DRUGS (2)
  1. LEVAQUIN [Suspect]
     Indication: BRONCHITIS
     Route: 048
     Dates: start: 20120301, end: 20120301
  2. STEROIDS NOS [Suspect]
     Indication: BRONCHITIS
     Route: 065
     Dates: start: 20120301, end: 20120301

REACTIONS (24)
  - PERSONALITY CHANGE [None]
  - ARTHROPATHY [None]
  - BLISTER [None]
  - PANIC ATTACK [None]
  - THINKING ABNORMAL [None]
  - FEELING ABNORMAL [None]
  - BACK PAIN [None]
  - DRY MOUTH [None]
  - PAIN IN EXTREMITY [None]
  - FEAR [None]
  - HYPERHIDROSIS [None]
  - FUNGAL INFECTION [None]
  - TEMPERATURE INTOLERANCE [None]
  - TONGUE DISCOLOURATION [None]
  - GASTROOESOPHAGEAL REFLUX DISEASE [None]
  - SUICIDAL IDEATION [None]
  - SENSATION OF FOREIGN BODY [None]
  - DYSPHAGIA [None]
  - ANXIETY [None]
  - MUSCULAR WEAKNESS [None]
  - INSOMNIA [None]
  - GAIT DISTURBANCE [None]
  - CONNECTIVE TISSUE DISORDER [None]
  - PHARYNGEAL OEDEMA [None]
